FAERS Safety Report 6024128-8 (Version None)
Quarter: 2008Q4

REPORT INFORMATION
  Report Type: 
  Country: None (occurrence: None)
  Receive Date: 20081224
  Receipt Date: 20081217
  Transmission Date: 20090506
  Serious: Yes (Other)
  Sender: FDA-Public Use
  Company Number: TUK2008A00173

PATIENT
  Age: 73 Year
  Sex: Female

DRUGS (6)
  1. ACTOS [Suspect]
     Dosage: 30 MG (30 MG) ORAL
     Route: 048
     Dates: start: 20080401
  2. ADALAT CC [Concomitant]
  3. BISOPROLOL FUMARATE [Concomitant]
  4. GLICLAZIDE (GLICLAZIDE) [Concomitant]
  5. METFORMIN HCL [Concomitant]
  6. PRAVASTATIN [Concomitant]

REACTIONS (1)
  - MICROCYTIC ANAEMIA [None]
